FAERS Safety Report 5226735-9 (Version None)
Quarter: 2007Q1

REPORT INFORMATION
  Report Type: 
  Country: None (occurrence: None)
  Receive Date: 20070129
  Receipt Date: 20061130
  Transmission Date: 20070707
  Serious: Yes (Death)
  Sender: FDA-Public Use
  Company Number: T200601664

PATIENT
  Age: 59 Year
  Sex: Female

DRUGS (1)
  1. PAMELOR [Suspect]
     Dosage: ORAL
     Route: 048

REACTIONS (14)
  - AGITATION [None]
  - BLOOD CREATININE INCREASED [None]
  - BLOOD UREA INCREASED [None]
  - CARDIAC DISORDER [None]
  - DRUG DISPENSING ERROR [None]
  - DRUG PRESCRIBING ERROR [None]
  - ELECTROCARDIOGRAM ABNORMAL [None]
  - ELECTROCARDIOGRAM QRS COMPLEX PROLONGED [None]
  - FALL [None]
  - HEART RATE INCREASED [None]
  - HIP FRACTURE [None]
  - INCORRECT DOSE ADMINISTERED [None]
  - MEDICATION ERROR [None]
  - SOMNOLENCE [None]
